FAERS Safety Report 9100892 (Version 2)
Quarter: 2013Q1

REPORT INFORMATION
  Report Type: Spontaneous
  Country: MX (occurrence: MX)
  Receive Date: 20130215
  Receipt Date: 20130312
  Transmission Date: 20140127
  Serious: Yes (Other)
  Sender: FDA-Public Use
  Company Number: PHHY2013MX014500

PATIENT
  Age: 48 Year
  Sex: Male

DRUGS (3)
  1. CO-DIOVAN [Suspect]
     Indication: HYPERTENSION
     Dosage: 1 DF(160/25 MG), DAILY
     Route: 048
  2. CO-DIOVAN [Suspect]
     Dosage: 0.5 DF(160/25 MG), DAILY
     Route: 048
  3. EUGLUCON [Concomitant]
     Indication: DIABETES MELLITUS
     Dosage: UNK UKN, DAILY

REACTIONS (4)
  - Neuropathy peripheral [Not Recovered/Not Resolved]
  - Pain [Not Recovered/Not Resolved]
  - Poor peripheral circulation [Unknown]
  - Wrong technique in drug usage process [Unknown]
